FAERS Safety Report 4377898-9 (Version None)
Quarter: 2004Q2

REPORT INFORMATION
  Report Type: 
  Country: None (occurrence: None)
  Receive Date: 20040609
  Receipt Date: 20040604
  Transmission Date: 20050107
  Serious: Yes (Death)
  Sender: FDA-Public Use
  Company Number: J081-002-001669

PATIENT
  Age: 73 Year
  Sex: Male

DRUGS (6)
  1. ARICEPT [Suspect]
     Indication: DEMENTIA ALZHEIMER'S TYPE
     Dosage: 5 MG, 1 IN 1 D, ORAL
     Route: 048
     Dates: start: 20031017
  2. DESYREL [Concomitant]
  3. SYMMETREL [Concomitant]
  4. NIVADIL (NILVADIPINE) [Concomitant]
  5. TICLOPIDINE HCL [Concomitant]
  6. ASPIRIN [Concomitant]

REACTIONS (1)
  - SUDDEN DEATH [None]
